FAERS Safety Report 17371142 (Version 1)
Quarter: 2020Q1

REPORT INFORMATION
  Report Type: Spontaneous
  Country: NO (occurrence: NO)
  Receive Date: 20200205
  Receipt Date: 20200205
  Transmission Date: 20200409
  Serious: Yes (Hospitalization, Disabling, Other)
  Sender: FDA-Public Use
  Company Number: NO-PFIZER INC-2020047246

PATIENT
  Age: 46 Year
  Sex: Male
  Weight: 108 kg

DRUGS (3)
  1. NIFENOVA [Concomitant]
     Dosage: UNK
     Dates: start: 20180910
  2. INSPRA [Suspect]
     Active Substance: EPLERENONE
     Indication: HYPERTENSION
     Dosage: 50 MG, 1X/DAY
     Dates: start: 20180903
  3. APROVEL [Concomitant]
     Active Substance: IRBESARTAN
     Dosage: UNK
     Dates: start: 20190722

REACTIONS (1)
  - Cerebrovascular accident [Unknown]
